FAERS Safety Report 10793431 (Version 1)
Quarter: 2015Q1

REPORT INFORMATION
  Report Type: Spontaneous
  Country: US (occurrence: US)
  Receive Date: 20150213
  Receipt Date: 20150213
  Transmission Date: 20150721
  Serious: No
  Sender: FDA-Public Use
  Company Number: US-PFIZER INC-2015056793

PATIENT
  Age: 51 Year
  Sex: Female
  Weight: 75 kg

DRUGS (1)
  1. NEURONTIN [Suspect]
     Active Substance: GABAPENTIN
     Indication: HERPES ZOSTER
     Dosage: 600 MG, 4X/DAY
     Dates: start: 201501

REACTIONS (4)
  - Amnesia [Unknown]
  - Weight increased [Unknown]
  - Thinking abnormal [Unknown]
  - Rash [Recovered/Resolved]
